FAERS Safety Report 12433049 (Version 4)
Quarter: 2016Q4

REPORT INFORMATION
  Report Type: Spontaneous
  Country: JP (occurrence: JP)
  Receive Date: 20160603
  Receipt Date: 20161229
  Transmission Date: 20170207
  Serious: Yes (Death, Hospitalization)
  Sender: FDA-Public Use
  Company Number: JP-ASTELLAS-2016JP008661AA

PATIENT
  Age: 84 Year
  Sex: Female
  Weight: 39 kg

DRUGS (19)
  1. BETANIS [Suspect]
     Active Substance: MIRABEGRON
     Route: 048
     Dates: start: 201604, end: 20160412
  2. JUZENTAIHOTO                       /07985601/ [Concomitant]
     Active Substance: HERBALS
     Indication: OVARIAN CANCER STAGE III
  3. EMEND [Concomitant]
     Active Substance: APREPITANT
     Indication: NAUSEA
     Route: 048
     Dates: start: 20160407, end: 20160407
  4. DAIKENCHUTO [Concomitant]
     Active Substance: HERBALS
     Indication: CONSTIPATION
     Route: 048
  5. MAGMITT [Concomitant]
     Active Substance: MAGNESIUM OXIDE
     Indication: PROPHYLAXIS
  6. VENA                               /00000402/ [Concomitant]
     Indication: PREMEDICATION
     Route: 048
     Dates: start: 20160407, end: 20160407
  7. EMEND [Concomitant]
     Active Substance: APREPITANT
     Indication: NAUSEA
     Route: 048
     Dates: start: 20160408, end: 20160409
  8. DECADRON [Concomitant]
     Active Substance: DEXAMETHASONE
     Indication: OVARIAN CANCER STAGE III
  9. PACLITAXEL. [Concomitant]
     Active Substance: PACLITAXEL
     Indication: PRODUCT USED FOR UNKNOWN INDICATION
     Route: 065
  10. VENA                               /00000402/ [Concomitant]
     Indication: OVARIAN CANCER STAGE III
  11. CARBOPLATIN. [Concomitant]
     Active Substance: CARBOPLATIN
     Indication: PRODUCT USED FOR UNKNOWN INDICATION
     Dosage: AUC4, ONCE DAILY
     Route: 065
  12. JUZENTAIHOTO                       /07985601/ [Concomitant]
     Active Substance: HERBALS
     Indication: MALAISE
     Route: 048
  13. RILMAZAFONE HYDROCHLORIDE [Concomitant]
     Active Substance: RILMAZAFONE HYDROCHLORIDE
     Indication: INSOMNIA
     Route: 048
  14. DAIKENCHUTO [Concomitant]
     Active Substance: HERBALS
     Indication: PROPHYLAXIS
  15. EMEND [Concomitant]
     Active Substance: APREPITANT
     Indication: OVARIAN CANCER STAGE III
  16. EMEND [Concomitant]
     Active Substance: APREPITANT
     Indication: OVARIAN CANCER STAGE III
  17. BETANIS [Suspect]
     Active Substance: MIRABEGRON
     Indication: HYPERTONIC BLADDER
     Route: 048
     Dates: start: 20160408, end: 201604
  18. MAGMITT [Concomitant]
     Active Substance: MAGNESIUM OXIDE
     Indication: CONSTIPATION
     Route: 048
  19. DECADRON [Concomitant]
     Active Substance: DEXAMETHASONE
     Indication: NAUSEA
     Route: 048
     Dates: start: 20160408, end: 20160410

REACTIONS (4)
  - Gastrointestinal necrosis [Fatal]
  - Colonic pseudo-obstruction [Not Recovered/Not Resolved]
  - Intentional product misuse [Unknown]
  - Thirst [Unknown]

NARRATIVE: CASE EVENT DATE: 201604
